FAERS Safety Report 4426175-6 (Version None)
Quarter: 2004Q3

REPORT INFORMATION
  Report Type: 
  Country: None (occurrence: None)
  Receive Date: 20040811
  Receipt Date: 20040727
  Transmission Date: 20050211
  Serious: Yes (Hospitalization, Other)
  Sender: FDA-Public Use
  Company Number: US_000644378

PATIENT
  Age: 65 Year
  Sex: Male
  Weight: 100 kg

DRUGS (11)
  1. HUMULIN N [Suspect]
     Indication: DIABETES MELLITUS
     Dosage: 40 U/ 2 DAY
     Dates: start: 19980101
  2. HUMALOG [Suspect]
     Indication: DIABETES MELLITUS
     Dates: start: 20000301
  3. HUMULIN R [Suspect]
     Indication: DIABETES MELLITUS
     Dates: start: 19980101, end: 20000301
  4. ARICEPT [Concomitant]
  5. CARDIZEM [Concomitant]
  6. LANOXIN [Concomitant]
  7. MONOPRIL [Concomitant]
  8. AMBIEN [Concomitant]
  9. MECLIZINE [Concomitant]
  10. LABETALOL HCL [Concomitant]
  11. LANTUS [Concomitant]

REACTIONS (15)
  - BLINDNESS [None]
  - BLOOD GLUCOSE INCREASED [None]
  - BLOOD PRESSURE INCREASED [None]
  - CARDIAC DISORDER [None]
  - CORONARY ARTERY OCCLUSION [None]
  - DIALYSIS [None]
  - DYSPNOEA [None]
  - FLUID RETENTION [None]
  - GALLBLADDER OPERATION [None]
  - HYPOTENSION [None]
  - MENIERE'S DISEASE [None]
  - THROMBOSIS [None]
  - TRANSIENT ISCHAEMIC ATTACK [None]
  - VISUAL DISTURBANCE [None]
  - WEIGHT DECREASED [None]
